FAERS Safety Report 5281576-1 (Version None)
Quarter: 2007Q1

REPORT INFORMATION
  Report Type: 
  Country: None (occurrence: None)
  Receive Date: 20061222
  Receipt Date: 20061110
  Transmission Date: 20070707
  Serious: Yes (Other)
  Sender: FDA-Public Use
  Company Number: 2006ADE/NIFED-029

PATIENT
  Age: 57 Year
  Sex: Male

DRUGS (4)
  1. NIFEDIPINE [Suspect]
  2. AMLODIPINE [Suspect]
     Dosage: 10MG, DAILY
  3. ALLOPURINOL [Concomitant]
  4. CALCIUM CARBONATE [Concomitant]

REACTIONS (1)
  - GYNAECOMASTIA [None]
